FAERS Safety Report 8968271 (Version 1)
Quarter: 2012Q4

REPORT INFORMATION
  Report Type: 
  Country: US (occurrence: US)
  Receive Date: 20121218
  Receipt Date: 20121218
  Transmission Date: 20130627
  Serious: No
  Sender: FDA-Public Use
  Company Number: US-BAYER-2012-127738

PATIENT
  Sex: Male

DRUGS (1)
  1. STIVARGA [Suspect]
     Indication: PROSTATE CANCER
     Dosage: 40 mg, TID (^1 tablet 3 times a day^)
     Route: 048
     Dates: start: 2012

REACTIONS (2)
  - Aphonia [None]
  - Off label use [None]
